FAERS Safety Report 8235709-5 (Version None)
Quarter: 2012Q1

REPORT INFORMATION
  Report Type: 
  Country: None (occurrence: None)
  Receive Date: 20120326
  Receipt Date: 20120313
  Transmission Date: 20120608
  Serious: Yes (Other)
  Sender: FDA-Public Use
  Company Number: PHHY2011US47816

PATIENT
  Sex: Female
  Weight: 70 kg

DRUGS (3)
  1. ILARIS [Suspect]
     Indication: CRYOPYRIN ASSOCIATED PERIODIC SYNDROME
  2. ILARIS [Suspect]
     Indication: URTICARIA
     Dosage: 90 MG, EVERY 8 WEEKS
     Route: 058
     Dates: start: 20090916
  3. ILARIS [Suspect]
     Indication: FAMILIAL COLD AUTOINFLAMMATORY SYNDROME
     Dosage: 75 MG EVERY 8 WEEKS
     Route: 058

REACTIONS (3)
  - ABDOMINAL PAIN UPPER [None]
  - URINARY TRACT INFECTION ENTEROCOCCAL [None]
  - CONSTIPATION [None]
